FAERS Safety Report 21589176 (Version 1)
Quarter: 2022Q4

REPORT INFORMATION
  Report Type: Spontaneous
  Country: ES (occurrence: None)
  Receive Date: 20221114
  Receipt Date: 20221114
  Transmission Date: 20230113
  Serious: Yes (Hospitalization)
  Sender: FDA-Public Use
  Company Number: 2022A369755

PATIENT
  Age: 57 Year
  Sex: Male

DRUGS (3)
  1. EVUSHELD [Suspect]
     Active Substance: CILGAVIMAB\TIXAGEVIMAB
     Indication: COVID-19 immunisation
     Dosage: 1.0DF ONCE/SINGLE ADMINISTRATION
     Route: 065
     Dates: start: 20220714, end: 20220714
  2. TACROLIMUS [Concomitant]
     Active Substance: TACROLIMUS
     Indication: Renal transplant
     Dates: start: 2012, end: 20220723
  3. SIROLIMUS (1269A) [Concomitant]
     Indication: Renal transplant
     Dates: start: 2012, end: 20210723

REACTIONS (1)
  - Pulmonary embolism [Recovering/Resolving]

NARRATIVE: CASE EVENT DATE: 20220719
